FAERS Safety Report 6130632-4 (Version None)
Quarter: 2009Q1

REPORT INFORMATION
  Report Type: 
  Country: None (occurrence: None)
  Receive Date: 20090325
  Receipt Date: 20090313
  Transmission Date: 20090719
  Serious: Yes (Death, Hospitalization)
  Sender: FDA-Public Use
  Company Number: DK-TEVA-188059ISR

PATIENT
  Sex: Female

DRUGS (13)
  1. METHOTREXATE [Suspect]
     Indication: TEMPORAL ARTERITIS
     Route: 048
     Dates: start: 20080925
  2. FOLIC ACID [Concomitant]
     Route: 048
  3. ALENDRONATE SODIUM [Concomitant]
     Route: 048
  4. ACETYLSALICYLIC ACID [Concomitant]
     Route: 048
  5. SIMVASTATIN [Concomitant]
     Route: 048
  6. BISACODYL [Concomitant]
     Route: 048
  7. POTASSIUM CHLORIDE [Concomitant]
     Route: 048
  8. PANTOPRAZOLE SODIUM [Concomitant]
     Route: 048
  9. SALURES-K [Concomitant]
     Dosage: 2.5+573MG
     Route: 048
  10. ATENOLOL [Concomitant]
     Route: 048
  11. WARFARIN SODIUM [Concomitant]
     Route: 048
  12. PREDNISOLONE [Concomitant]
  13. NYSTATIN [Concomitant]
     Route: 048

REACTIONS (2)
  - BONE MARROW FAILURE [None]
  - OVERDOSE [None]
